FAERS Safety Report 5767216-3 (Version None)
Quarter: 2008Q2

REPORT INFORMATION
  Report Type: 
  Country: None (occurrence: None)
  Receive Date: 20080611
  Receipt Date: 20080611
  Transmission Date: 20081010
  Serious: No
  Sender: FDA-Public Use
  Company Number: None

PATIENT

DRUGS (2)
  1. METHYLPHENIDATE HCL [Suspect]
  2. HUMAN GROWTH HORMONE [Suspect]

REACTIONS (8)
  - BODY HEIGHT BELOW NORMAL [None]
  - DRUG LEVEL INCREASED [None]
  - DRUG TOXICITY [None]
  - FATIGUE [None]
  - LEARNING DISABILITY [None]
  - NEUROFIBROMATOSIS [None]
  - RETCHING [None]
  - VOMITING [None]
